FAERS Safety Report 20625898 (Version 3)
Quarter: 2022Q2

REPORT INFORMATION
  Report Type: Spontaneous
  Country: US (occurrence: None)
  Receive Date: 20220323
  Receipt Date: 20220429
  Transmission Date: 20220721
  Serious: Yes (Hospitalization, Other)
  Sender: FDA-Public Use
  Company Number: US-Hikma Pharmaceuticals USA Inc.-US-H14001-22-00817

PATIENT
  Age: 39 Year
  Sex: Female

DRUGS (5)
  1. PREDNISONE [Suspect]
     Active Substance: PREDNISONE
     Indication: Back pain
     Dosage: ONE TABLET (NOT SURE ABOUT THE DOSE 40 OR 50MG)
     Route: 065
     Dates: start: 20220215
  2. PREDNISONE [Suspect]
     Active Substance: PREDNISONE
     Indication: Product used for unknown indication
     Dosage: ONE TABLET (NOT SURE ABOUT THE DOSE 40 OR 50MG)
     Route: 065
     Dates: start: 20220216
  3. PREDNISONE [Suspect]
     Active Substance: PREDNISONE
     Indication: Muscular weakness
  4. PREDNISONE [Suspect]
     Active Substance: PREDNISONE
     Indication: Musculoskeletal discomfort
  5. POTASSIUM CHLORIDE [Concomitant]
     Active Substance: POTASSIUM CHLORIDE
     Indication: Product used for unknown indication
     Route: 065

REACTIONS (7)
  - Paralysis [Recovered/Resolved]
  - Condition aggravated [Recovered/Resolved]
  - Asthenia [Recovered/Resolved]
  - Metabolic acidosis [Recovered/Resolved]
  - Seizure [Recovered/Resolved]
  - Myoclonus [Recovered/Resolved]
  - Cardiac arrest [Recovered/Resolved]

NARRATIVE: CASE EVENT DATE: 20220216
